FAERS Safety Report 25691727 (Version 1)
Quarter: 2025Q3

REPORT INFORMATION
  Report Type: Spontaneous
  Country: US (occurrence: US)
  Receive Date: 20250818
  Receipt Date: 20250818
  Transmission Date: 20251021
  Serious: Yes (Hospitalization, Other)
  Sender: NOVO NORDISK
  Company Number: US-NOVOPROD-1501120

PATIENT
  Age: 68 Year
  Sex: Female

DRUGS (3)
  1. NOVOLOG [Suspect]
     Active Substance: INSULIN ASPART
     Indication: Diabetes mellitus
     Route: 058
     Dates: start: 2018
  2. NOVOLOG [Suspect]
     Active Substance: INSULIN ASPART
     Route: 058
     Dates: start: 2024
  3. TRESIBA [Suspect]
     Active Substance: INSULIN DEGLUDEC
     Indication: Diabetes mellitus
     Dosage: 18 IU, QD
     Route: 058
     Dates: start: 202405

REACTIONS (20)
  - Pancreatic disorder [Unknown]
  - Hypoxia [Unknown]
  - Endocrine ophthalmopathy [Unknown]
  - Noninfective encephalitis [Unknown]
  - Condition aggravated [Unknown]
  - Autoimmune thyroid disorder [Unknown]
  - Condition aggravated [Unknown]
  - Diabetic ketoacidosis [Unknown]
  - Drug hypersensitivity [Unknown]
  - Weight increased [Unknown]
  - Blood glucose decreased [Unknown]
  - Glycosylated haemoglobin increased [Unknown]
  - Blood glucose fluctuation [Unknown]
  - Blood glucose increased [Unknown]
  - Injection site swelling [Unknown]
  - Injection site pain [Unknown]
  - Injection site pruritus [Unknown]
  - Injection site rash [Unknown]
  - Administration site bruise [Unknown]
  - Impaired quality of life [Unknown]

NARRATIVE: CASE EVENT DATE: 20240501
